FAERS Safety Report 18866091 (Version 2)
Quarter: 2021Q2

REPORT INFORMATION
  Report Type: Spontaneous
  Country: US (occurrence: US)
  Receive Date: 20210208
  Receipt Date: 20210521
  Transmission Date: 20210717
  Serious: No
  Sender: FDA-Public Use
  Company Number: US-PFIZER INC-2021116230

PATIENT
  Age: 49 Year
  Sex: Female

DRUGS (4)
  1. XELJANZ XR [Suspect]
     Active Substance: TOFACITINIB CITRATE
     Dosage: 11 MG
     Dates: start: 20200519, end: 20201228
  2. XELJANZ XR [Suspect]
     Active Substance: TOFACITINIB CITRATE
     Dosage: 11 MG
     Dates: start: 2021
  3. XELJANZ XR [Suspect]
     Active Substance: TOFACITINIB CITRATE
     Dosage: 11 MG
     Dates: start: 20210125, end: 2021
  4. XELJANZ XR [Suspect]
     Active Substance: TOFACITINIB CITRATE
     Dosage: 11 MG
     Dates: start: 20200805

REACTIONS (11)
  - Chills [Unknown]
  - Dyspnoea [Unknown]
  - Abnormal faeces [Unknown]
  - Oropharyngeal pain [Unknown]
  - Nausea [Unknown]
  - COVID-19 [Unknown]
  - Infection [Recovered/Resolved]
  - Diarrhoea [Unknown]
  - Pyrexia [Unknown]
  - Headache [Unknown]
  - Nasal congestion [Unknown]

NARRATIVE: CASE EVENT DATE: 202012
